FAERS Safety Report 11057152 (Version 2)
Quarter: 2015Q2

REPORT INFORMATION
  Report Type: Spontaneous
  Country: US (occurrence: US)
  Receive Date: 20150422
  Receipt Date: 20150507
  Transmission Date: 20150821
  Serious: No
  Sender: FDA-Public Use
  Company Number: US-PFIZER INC-2015130164

PATIENT
  Age: 56 Year
  Sex: Female
  Weight: 104 kg

DRUGS (2)
  1. SUTENT [Suspect]
     Active Substance: SUNITINIB MALATE
     Dosage: 50 MG, UNK
     Dates: start: 20150316, end: 20150413
  2. LOSARTAN [Suspect]
     Active Substance: LOSARTAN
     Dosage: UNK
     Dates: start: 20150410

REACTIONS (3)
  - Pain in jaw [Unknown]
  - Chest pain [Unknown]
  - Blood pressure decreased [Recovered/Resolved]

NARRATIVE: CASE EVENT DATE: 20150410
